FAERS Safety Report 22654215 (Version 1)
Quarter: 2023Q2

REPORT INFORMATION
  Report Type: Other
  Country: GB (occurrence: None)
  Receive Date: 20230629
  Receipt Date: 20230629
  Transmission Date: 20230721
  Serious: Yes (Other)
  Sender: FDA-Public Use
  Company Number: GB-ROCHE-2878905

PATIENT
  Sex: Female

DRUGS (1)
  1. TOCILIZUMAB [Suspect]
     Active Substance: TOCILIZUMAB
     Indication: Product used for unknown indication
     Route: 058
     Dates: start: 20210601

REACTIONS (5)
  - Cough [Unknown]
  - Malaise [Unknown]
  - Memory impairment [Unknown]
  - Mouth ulceration [Unknown]
  - Nail disorder [Unknown]
